FAERS Safety Report 9379312 (Version 2)
Quarter: 2013Q3

REPORT INFORMATION
  Report Type: Spontaneous
  Country: NL (occurrence: NL)
  Receive Date: 20130702
  Receipt Date: 20130820
  Transmission Date: 20140515
  Serious: Yes (Death)
  Sender: FDA-Public Use
  Company Number: NL-PFIZER INC-2013193459

PATIENT
  Age: 30 Year
  Sex: Female
  Weight: 70 kg

DRUGS (6)
  1. ESTRADIOL [Suspect]
     Dosage: 1 DF, 1X/DAY
     Dates: start: 20130205
  2. VENLAFAXINE HCL [Interacting]
     Indication: DEPRESSION
     Dosage: 150 MG, 1X/DAY
  3. VENLAFAXINE HCL [Interacting]
     Dosage: 187.5 MG, 1X/DAY
     Dates: start: 20130425
  4. NIFEDIPINE [Interacting]
     Indication: PERIPHERAL COLDNESS
     Dosage: 20 MG, 2X/DAY
     Dates: start: 20100409
  5. CALCICHEW [Interacting]
     Indication: PROPHYLAXIS
     Dosage: 500 MG, 1X/DAY
     Dates: start: 20110831
  6. KERUTAB [Concomitant]

REACTIONS (2)
  - Cardiac death [Fatal]
  - Drug interaction [Unknown]
